FAERS Safety Report 12709487 (Version 1)
Quarter: 2016Q3

REPORT INFORMATION
  Report Type: Spontaneous
  Country: US (occurrence: None)
  Receive Date: 20160901
  Receipt Date: 20160901
  Transmission Date: 20161109
  Serious: No
  Sender: FDA-Public Use
  Company Number: None

PATIENT
  Age: 66 Year
  Sex: Male
  Weight: 95 kg

DRUGS (1)
  1. SUVOREXANT. [Suspect]
     Active Substance: SUVOREXANT
     Indication: INSOMNIA
     Dosage: MG PO
     Route: 048
     Dates: start: 20160722, end: 20160801

REACTIONS (4)
  - Dyspnoea [None]
  - Myalgia [None]
  - Anxiety [None]
  - Burning sensation [None]

NARRATIVE: CASE EVENT DATE: 20160728
